FAERS Safety Report 5055964-2 (Version None)
Quarter: 2006Q3

REPORT INFORMATION
  Report Type: 
  Country: None (occurrence: None)
  Receive Date: 20060720
  Receipt Date: 20060619
  Transmission Date: 20061208
  Serious: Yes (Hospitalization)
  Sender: FDA-Public Use
  Company Number: FR-AVENTIS-200612225FR

PATIENT
  Age: 93 Year
  Sex: Female

DRUGS (9)
  1. LASILIX [Suspect]
     Route: 048
     Dates: end: 20060207
  2. AMLOR [Suspect]
     Route: 048
     Dates: end: 20060207
  3. DISCOTRINE [Concomitant]
     Dates: end: 20060207
  4. VASTAREL [Concomitant]
     Dates: end: 20060207
  5. DEROXAT [Concomitant]
  6. KALEORID [Concomitant]
  7. PREVISCAN [Concomitant]
  8. DITROPAN [Concomitant]
  9. INSULINE [Concomitant]

REACTIONS (4)
  - HYPERSOMNIA [None]
  - HYPOGLYCAEMIA [None]
  - HYPOTENSION [None]
  - SOMNOLENCE [None]
